FAERS Safety Report 24178622 (Version 2)
Quarter: 2025Q2

REPORT INFORMATION
  Report Type: Spontaneous
  Country: CZ (occurrence: CZ)
  Receive Date: 20240806
  Receipt Date: 20250504
  Transmission Date: 20250716
  Serious: Yes (Other)
  Sender: SANOFI AVENTIS
  Company Number: None

PATIENT
  Age: 31 Year

DRUGS (2)
  1. DUPIXENT [Suspect]
     Active Substance: DUPILUMAB
     Indication: Chronic rhinosinusitis with nasal polyps
     Dosage: UNK UNK, QM
     Dates: end: 2024
  2. MOMETASONE FUROATE [Concomitant]
     Active Substance: MOMETASONE FUROATE

REACTIONS (2)
  - Iridocyclitis [Recovering/Resolving]
  - Inappropriate schedule of product administration [Unknown]

NARRATIVE: CASE EVENT DATE: 20240714
